FAERS Safety Report 6679278-X (Version None)
Quarter: 2010Q2

REPORT INFORMATION
  Report Type: 
  Country: None (occurrence: None)
  Receive Date: 20100408
  Receipt Date: 20090727
  Transmission Date: 20101027
  Serious: No
  Sender: FDA-Public Use
  Company Number: 2009-00460

PATIENT
  Age: 71 Year
  Sex: Male
  Weight: 88.4514 kg

DRUGS (1)
  1. ZICAM COLD REMEDY NASAL GEL [Suspect]
     Dosage: SPORADIC - 5 YEARS, 5 YEARS AGO - RECENT

REACTIONS (1)
  - ANOSMIA [None]
